FAERS Safety Report 10179685 (Version 2)
Quarter: 2014Q2

REPORT INFORMATION
  Report Type: Spontaneous
  Country: US (occurrence: US)
  Receive Date: 20140519
  Receipt Date: 20140624
  Transmission Date: 20141212
  Serious: No
  Sender: FDA-Public Use
  Company Number: US-PFIZER INC-2014131907

PATIENT
  Age: 72 Year
  Sex: Female
  Weight: 79.37 kg

DRUGS (4)
  1. CADUET [Suspect]
     Indication: BLOOD CHOLESTEROL INCREASED
     Dosage: UNK
  2. CADUET [Suspect]
     Indication: HYPERTENSION
     Dosage: 10/20 MG (UNKNOWN FREQUENCY)
     Dates: start: 20140425, end: 2014
  3. LEVOTHYROXINE [Concomitant]
     Indication: THYROID DISORDER
     Dosage: 100 UG, DAILY
  4. VITAMIN D2 [Concomitant]
     Dosage: 50000 IU, WEEKLY

REACTIONS (3)
  - Suspected counterfeit product [Recovered/Resolved]
  - Erythema [Recovered/Resolved]
  - Peripheral swelling [Recovered/Resolved]
